FAERS Safety Report 5563951-0 (Version None)
Quarter: 2007Q4

REPORT INFORMATION
  Report Type: 
  Country: None (occurrence: None)
  Receive Date: 20071217
  Receipt Date: 20071205
  Transmission Date: 20080405
  Serious: Yes (Disabling, Other)
  Sender: FDA-Public Use
  Company Number: US-PFIZER INC-2007101073

PATIENT
  Sex: Female
  Weight: 49.9 kg

DRUGS (7)
  1. ZOLOFT [Suspect]
     Indication: DEPRESSION
  2. VISTARIL [Suspect]
     Dates: start: 20010101, end: 20010101
  3. WELLBUTRIN [Suspect]
     Dates: start: 20010101, end: 20010101
  4. CLONAZEPAM [Concomitant]
  5. ABILIFY [Concomitant]
  6. TRAZODONE HCL [Concomitant]
  7. NAPROXEN [Concomitant]

REACTIONS (22)
  - AKATHISIA [None]
  - ANXIETY [None]
  - BACK INJURY [None]
  - DIARRHOEA [None]
  - DISTURBANCE IN ATTENTION [None]
  - DIZZINESS [None]
  - DRY MOUTH [None]
  - FATIGUE [None]
  - FEELING ABNORMAL [None]
  - GAIT DISTURBANCE [None]
  - GRAND MAL CONVULSION [None]
  - INSOMNIA [None]
  - MENTAL DISORDER [None]
  - MUSCLE SPASMS [None]
  - NAUSEA [None]
  - NECK INJURY [None]
  - NERVOUSNESS [None]
  - PAIN [None]
  - ROAD TRAFFIC ACCIDENT [None]
  - SCOLIOSIS [None]
  - SOMNOLENCE [None]
  - TREMOR [None]
